FAERS Safety Report 23277968 (Version 1)
Quarter: 2023Q4

REPORT INFORMATION
  Report Type: Spontaneous
  Country: US (occurrence: US)
  Receive Date: 20231208
  Receipt Date: 20231208
  Transmission Date: 20240110
  Serious: No
  Sender: FDA-Public Use
  Company Number: MYC23-00230

PATIENT

DRUGS (3)
  1. VIVJOA [Suspect]
     Active Substance: OTESECONAZOLE
     Indication: Product used for unknown indication
     Dosage: 4 UNK, SINGLE
     Route: 048
     Dates: start: 202210
  2. VIVJOA [Suspect]
     Active Substance: OTESECONAZOLE
     Dosage: 3 UNK, SINGLE
     Route: 048
     Dates: start: 202210
  3. VIVJOA [Suspect]
     Active Substance: OTESECONAZOLE
     Dosage: 1 UNK, WEEKLY
     Route: 048
     Dates: start: 202210

REACTIONS (2)
  - Drug ineffective [Unknown]
  - Product dose omission issue [Unknown]
